FAERS Safety Report 26037456 (Version 2)
Quarter: 2025Q4

REPORT INFORMATION
  Report Type: Other
  Country: US (occurrence: US)
  Receive Date: 20251112
  Receipt Date: 20251205
  Transmission Date: 20260119
  Serious: Yes (Disabling)
  Sender: LEITERS COMPOUNDING PHARMACY
  Company Number: US-Leiters-2188437

PATIENT
  Age: 89 Year
  Sex: Female
  Weight: 73.636 kg

DRUGS (1)
  1. BEVACIZUMAB [Suspect]
     Active Substance: BEVACIZUMAB
     Indication: Neovascular age-related macular degeneration
     Dates: start: 20251022, end: 20251022

REACTIONS (1)
  - Endophthalmitis [Recovering/Resolving]

NARRATIVE: CASE EVENT DATE: 20251022
